FAERS Safety Report 21090939 (Version 1)
Quarter: 2022Q3

REPORT INFORMATION
  Report Type: Spontaneous
  Country: NL (occurrence: NL)
  Receive Date: 20220716
  Receipt Date: 20220716
  Transmission Date: 20221027
  Serious: Yes (Other)
  Sender: FDA-Public Use
  Company Number: None

PATIENT
  Age: 53 Year
  Sex: Female
  Weight: 68 kg

DRUGS (1)
  1. CETIRIZINE [Suspect]
     Active Substance: CETIRIZINE HYDROCHLORIDE
     Indication: Hypersensitivity
     Dosage: 10 MG, CETIRIZINE TABLET 10MG / BRAND NAME NOT SPECIFIED
     Dates: start: 2022, end: 20220329

REACTIONS (1)
  - Paresis [Unknown]

NARRATIVE: CASE EVENT DATE: 20220402
